FAERS Safety Report 11869136 (Version 2)
Quarter: 2016Q1

REPORT INFORMATION
  Report Type: Spontaneous
  Country: CA (occurrence: CA)
  Receive Date: 20151226
  Receipt Date: 20160108
  Transmission Date: 20160526
  Serious: Yes (Hospitalization, Other)
  Sender: FDA-Public Use
  Company Number: CA-AMGEN-CANSL2015136765

PATIENT
  Age: 58 Year
  Sex: Male
  Weight: 106 kg

DRUGS (3)
  1. PRAVASTATIN [Concomitant]
     Active Substance: PRAVASTATIN\PRAVASTATIN SODIUM
     Dosage: 10 MG, QD
  2. REPATHA [Suspect]
     Active Substance: EVOLOCUMAB
     Indication: HYPERCHOLESTEROLAEMIA
     Dosage: 140 MG, Q2WK
     Route: 058
     Dates: start: 20151214, end: 20151214
  3. EZETROL [Concomitant]
     Active Substance: EZETIMIBE
     Dosage: 10 MG, QD

REACTIONS (16)
  - Sinus headache [Recovered/Resolved]
  - Blood pressure increased [Unknown]
  - Arthralgia [Recovering/Resolving]
  - Blood lactate dehydrogenase abnormal [Unknown]
  - Fatigue [Recovering/Resolving]
  - Toothache [Recovering/Resolving]
  - Influenza like illness [Unknown]
  - Upper respiratory tract infection [Unknown]
  - Pain in jaw [Unknown]
  - Feeling of body temperature change [Recovering/Resolving]
  - Chest pain [Unknown]
  - Heart rate abnormal [Unknown]
  - Gingival pain [Recovering/Resolving]
  - Malaise [Recovering/Resolving]
  - Alanine aminotransferase abnormal [Unknown]
  - Drug hypersensitivity [Unknown]

NARRATIVE: CASE EVENT DATE: 201512
